FAERS Safety Report 5143383-X (Version None)
Quarter: 2006Q4

REPORT INFORMATION
  Report Type: 
  Country: None (occurrence: None)
  Receive Date: 20061030
  Receipt Date: 20061016
  Transmission Date: 20070319
  Serious: Yes (Hospitalization)
  Sender: FDA-Public Use
  Company Number: 36799

PATIENT
  Age: 61 Year
  Sex: Male

DRUGS (1)
  1. INTRAOCULAR CARBACHOL [Suspect]
     Indication: MIOSIS
     Dosage: IO
     Route: 031
     Dates: start: 20061012, end: 20061012

REACTIONS (3)
  - CONVULSION [None]
  - EYE PAIN [None]
  - SYNCOPE [None]
